FAERS Safety Report 9028359 (Version 1)
Quarter: 2013Q1

REPORT INFORMATION
  Report Type: Spontaneous
  Country: US (occurrence: US)
  Receive Date: 20130124
  Receipt Date: 20130124
  Transmission Date: 20140127
  Serious: No
  Sender: FDA-Public Use
  Company Number: US-BAUSCH-BL-2012-000759

PATIENT
  Age: 81 Year
  Sex: Male

DRUGS (3)
  1. ALAWAY [Suspect]
     Indication: DRY EYE
     Dosage: 1 DROP IN EACH EYE; ONCE TO TWICE DAILY
     Route: 047
     Dates: start: 20120830
  2. ALAWAY [Suspect]
     Indication: OFF LABEL USE
  3. ASCORBIC ACID [Concomitant]

REACTIONS (1)
  - Eye irritation [Not Recovered/Not Resolved]
